FAERS Safety Report 10866393 (Version 1)
Quarter: 2015Q1

REPORT INFORMATION
  Report Type: Spontaneous
  Country: US (occurrence: None)
  Receive Date: 20150219
  Receipt Date: 20150219
  Transmission Date: 20150721
  Serious: No
  Sender: FDA-Public Use
  Company Number: None

PATIENT
  Age: 43 Year
  Sex: Female
  Weight: 72.58 kg

DRUGS (7)
  1. PROZAC [Suspect]
     Active Substance: FLUOXETINE HYDROCHLORIDE
     Indication: ANXIETY
     Dosage: 3 PILLS ONCE A DAY
     Route: 048
     Dates: start: 20150214, end: 20150218
  2. PROZAC [Suspect]
     Active Substance: FLUOXETINE HYDROCHLORIDE
     Dosage: 3 PILLS ONCE A DAY
     Route: 048
     Dates: start: 20150214, end: 20150218
  3. VISTARIL [Concomitant]
     Active Substance: HYDROXYZINE PAMOATE
  4. PANTOPRASOLE [Concomitant]
  5. JUNEL [Concomitant]
     Active Substance: ETHINYL ESTRADIOL\NORETHINDRONE ACETATE
  6. VITAMIN D [Concomitant]
     Active Substance: CHOLECALCIFEROL
  7. LEVOTHYROXINE [Concomitant]
     Active Substance: LEVOTHYROXINE

REACTIONS (4)
  - Dizziness [None]
  - Vertigo [None]
  - Vision blurred [None]
  - Tremor [None]

NARRATIVE: CASE EVENT DATE: 20150216
